FAERS Safety Report 15239645 (Version 1)
Quarter: 2018Q3

REPORT INFORMATION
  Report Type: Spontaneous
  Country: AT (occurrence: AT)
  Receive Date: 20180803
  Receipt Date: 20180803
  Transmission Date: 20181010
  Serious: Yes (Hospitalization, Other)
  Sender: FDA-Public Use
  Company Number: AT-ALLERGAN-1836269US

PATIENT
  Age: 31 Year
  Sex: Female

DRUGS (4)
  1. MILNACIPRAN ? BP [Suspect]
     Active Substance: MILNACIPRAN
     Dosage: 25 MG, UNK
     Route: 065
     Dates: start: 20180519, end: 20180523
  2. BETAMETHASONE W/CALCIPOTRIOL [Concomitant]
     Active Substance: BETAMETHASONE DIPROPIONATE\CALCIPOTRIENE HYDRATE
     Indication: PSORIASIS
     Dosage: 50 ?G, UNK (50 ?G/ G)
     Route: 061
     Dates: start: 201801
  3. HUMIRA [Concomitant]
     Active Substance: ADALIMUMAB
     Indication: PSORIASIS
     Dosage: 40 MG, UNK (40 MG/ 0.4 ML)
     Route: 058
     Dates: start: 201711, end: 201801
  4. MILNACIPRAN ? BP [Suspect]
     Active Substance: MILNACIPRAN
     Indication: DEPRESSION
     Dosage: 25 MG, UNK
     Route: 065
     Dates: start: 20171109, end: 20171210

REACTIONS (2)
  - Hepatitis cholestatic [Recovered/Resolved]
  - Hepatitis cholestatic [Recovered/Resolved]

NARRATIVE: CASE EVENT DATE: 201711
